FAERS Safety Report 24045365 (Version 1)
Quarter: 2024Q3

REPORT INFORMATION
  Report Type: Spontaneous
  Country: DE (occurrence: DE)
  Receive Date: 20240703
  Receipt Date: 20240703
  Transmission Date: 20241016
  Serious: Yes (Hospitalization)
  Sender: CHEPLAPHARM
  Company Number: None

PATIENT
  Age: 66 Year
  Sex: Female
  Weight: 70 kg

DRUGS (21)
  1. VALGANCICLOVIR [Suspect]
     Active Substance: VALGANCICLOVIR
     Indication: Opportunistic infection prophylaxis
     Route: 048
     Dates: start: 200811, end: 20090206
  2. CELLCEPT [Suspect]
     Active Substance: MYCOPHENOLATE MOFETIL
     Indication: Immunosuppression
     Dosage: DAILY DOSE: 500 MILLIGRAM
     Route: 048
     Dates: start: 200811, end: 20090209
  3. CELLCEPT [Suspect]
     Active Substance: MYCOPHENOLATE MOFETIL
     Indication: Renal transplant
     Dosage: DAILY DOSE: 500 MILLIGRAM
     Route: 048
     Dates: start: 200811, end: 20090209
  4. CELLCEPT [Suspect]
     Active Substance: MYCOPHENOLATE MOFETIL
     Indication: Immunosuppression
     Route: 048
     Dates: start: 20090217
  5. CELLCEPT [Suspect]
     Active Substance: MYCOPHENOLATE MOFETIL
     Indication: Renal transplant
     Route: 048
     Dates: start: 20090217
  6. SULFAMETHOXAZOLE\TRIMETHOPRIM [Suspect]
     Active Substance: SULFAMETHOXAZOLE\TRIMETHOPRIM
     Indication: Prophylaxis urinary tract infection
     Route: 048
     Dates: start: 20081223, end: 20090206
  7. RAMIPRIL [Suspect]
     Active Substance: RAMIPRIL
     Indication: Hypertension
     Route: 048
     Dates: start: 20081223, end: 20090206
  8. NOVALGIN (METAMIZOLE SODIUM) [Suspect]
     Active Substance: METAMIZOLE SODIUM
     Indication: Pain
     Route: 048
     Dates: start: 200811, end: 20090206
  9. CYCLOSPORINE [Suspect]
     Active Substance: CYCLOSPORINE
     Indication: Immunosuppression
     Dosage: 225MG GIVEN IN MORNING AND 200 MG GIVEN IN EVENING
     Route: 048
     Dates: start: 200811
  10. CYCLOSPORINE [Suspect]
     Active Substance: CYCLOSPORINE
     Indication: Renal transplant
     Dosage: 225MG GIVEN IN MORNING AND 200 MG GIVEN IN EVENING
     Route: 048
     Dates: start: 200811
  11. CYCLOSPORINE [Suspect]
     Active Substance: CYCLOSPORINE
     Indication: Immunosuppression
     Dosage: 150 GIVEN IN MORNING AND 125 GIVEN IN EVENING
     Route: 048
     Dates: start: 20090209
  12. CYCLOSPORINE [Suspect]
     Active Substance: CYCLOSPORINE
     Indication: Renal transplant
     Dosage: 150 GIVEN IN MORNING AND 125 GIVEN IN EVENING
     Route: 048
     Dates: start: 20090209
  13. BISOPROLOL [Concomitant]
     Active Substance: BISOPROLOL\BISOPROLOL FUMARATE
     Indication: Tachycardia
     Route: 048
     Dates: start: 20081223
  14. CALCIUM\CHOLECALCIFEROL [Concomitant]
     Active Substance: CALCIUM\CHOLECALCIFEROL
     Indication: Chronic kidney disease-mineral and bone disorder
     Dosage: NUMBER OF SEPERATE DOSAGES REPORTED AS 2
     Route: 048
     Dates: start: 200811
  15. FALITHROM [Concomitant]
     Active Substance: PHENPROCOUMON
     Indication: Venous thrombosis
     Dosage: NUMBER OF SEPERATE DOSAGES REPORTED AS 1
     Route: 048
     Dates: start: 20090130, end: 20090207
  16. Locol [Concomitant]
     Indication: Cardiovascular event prophylaxis
     Dosage: NUMBER OF SEPERATE DOSAGES REPORTED AS 1?DAILY DOSE: 40 MILLIGRAM
     Route: 048
     Dates: start: 200811
  17. MCP [Concomitant]
     Active Substance: METOCLOPRAMIDE HYDROCHLORIDE
     Dosage: NUMBER OF SEPERATE DOSAGES REPORTED AS 3, UNIT: GTT DROPS?DAILY DOSE: 60 MILLIGRAM
     Route: 048
     Dates: start: 200812, end: 20090213
  18. PANTOPRAZOLE SODIUM [Concomitant]
     Active Substance: PANTOPRAZOLE SODIUM
     Indication: Prophylaxis against gastrointestinal ulcer
     Dosage: NUMBER OF SEPERATE DOSAGES REPORTED AS 1?DAILY DOSE: 40 MILLIGRAM
     Route: 048
     Dates: start: 200811
  19. PREDNISOLONE [Concomitant]
     Active Substance: PREDNISOLONE
     Indication: Immunosuppression
     Dosage: NUMBER OF SEPERATE DOSAGES REPORTED AS 1?DAILY DOSE: 5 MILLIGRAM
     Route: 048
     Dates: start: 200811
  20. PREDNISOLONE [Concomitant]
     Active Substance: PREDNISOLONE
     Indication: Renal transplant
     Dosage: NUMBER OF SEPERATE DOSAGES REPORTED AS 1?DAILY DOSE: 5 MILLIGRAM
     Route: 048
     Dates: start: 200811
  21. TORSEMIDE [Concomitant]
     Active Substance: TORSEMIDE
     Indication: Hypertension
     Dosage: NUMBER OF SEPERATE DOSAGES REPORTED AS 2?DAILY DOSE: 10 MILLIGRAM
     Route: 048
     Dates: start: 200811

REACTIONS (10)
  - Urinary tract infection pseudomonal [Recovered/Resolved]
  - Leukopenia [Recovered/Resolved]
  - Erythropenia [Recovered/Resolved]
  - Renal tubular disorder [Unknown]
  - Focal segmental glomerulosclerosis [Unknown]
  - Renal impairment [Unknown]
  - Oropharyngeal pain [Recovering/Resolving]
  - Renal tubular atrophy [Unknown]
  - Nasopharyngitis [Recovering/Resolving]
  - Cough [Recovering/Resolving]

NARRATIVE: CASE EVENT DATE: 20090206
